FAERS Safety Report 15145669 (Version 1)
Quarter: 2018Q3

REPORT INFORMATION
  Report Type: Spontaneous
  Country: US (occurrence: US)
  Receive Date: 20180714
  Receipt Date: 20180714
  Transmission Date: 20181010
  Serious: No
  Sender: FDA-Public Use
  Company Number: US-JNJFOC-20180702981

PATIENT
  Age: 77 Year
  Sex: Female
  Weight: 65.77 kg

DRUGS (7)
  1. SUDAFED [Suspect]
     Active Substance: PSEUDOEPHEDRINE HYDROCHLORIDE
     Indication: SINUS DISORDER
     Route: 065
  2. CALCIUM [Concomitant]
     Active Substance: CALCIUM
     Indication: ROUTINE HEALTH MAINTENANCE
     Route: 065
  3. NEUTROGENA RAPID WRINKLE REPAIR REGENERATING CREAM [Concomitant]
     Active Substance: COSMETICS
     Indication: SKIN WRINKLING
     Dosage: A PEA SIZED AMOUNT NIGHTLY
     Route: 061
     Dates: start: 20180604, end: 20180618
  4. VITAMIN D [Concomitant]
     Active Substance: CHOLECALCIFEROL
     Indication: ROUTINE HEALTH MAINTENANCE
     Route: 065
  5. NEUTROGENA RAPID WRINKLE REPAIR REGENERATING CREAM [Concomitant]
     Active Substance: COSMETICS
     Indication: SKIN DISCOLOURATION
     Dosage: A PEA SIZED AMOUNT NIGHTLY
     Route: 061
     Dates: start: 20180604, end: 20180618
  6. SUDAFED [Suspect]
     Active Substance: PSEUDOEPHEDRINE HYDROCHLORIDE
     Indication: HYPERSENSITIVITY
     Route: 065
  7. SUDAFED [Suspect]
     Active Substance: PSEUDOEPHEDRINE HYDROCHLORIDE
     Indication: HEADACHE
     Route: 065

REACTIONS (2)
  - Product use in unapproved indication [Unknown]
  - Therapeutic response unexpected [Unknown]
